FAERS Safety Report 8175052-6 (Version None)
Quarter: 2012Q1

REPORT INFORMATION
  Report Type: 
  Country: None (occurrence: None)
  Receive Date: 20120229
  Receipt Date: 20120222
  Transmission Date: 20120608
  Serious: Yes (Other)
  Sender: FDA-Public Use
  Company Number: PHHY2012FR016403

PATIENT
  Age: 79 Year
  Sex: Female
  Weight: 71 kg

DRUGS (7)
  1. OXAZEPAM [Concomitant]
     Dosage: 50 MG, UNK
  2. ZOLEDRONOC ACID [Suspect]
     Indication: OSTEOPOROSIS
     Dosage: 5 MG, UNK
     Route: 042
     Dates: start: 20120110
  3. SPASFON [Concomitant]
  4. COLPOTROPHINE [Concomitant]
  5. POLYETHYLENE GLYCOL [Concomitant]
  6. SIMVASTATIN [Concomitant]
     Indication: HYPERCHOLESTEROLAEMIA
     Dosage: 25 MG, UNK
  7. IRBESARTAN [Concomitant]
     Indication: HYPERTENSION
     Dosage: 25 MG, UNK

REACTIONS (11)
  - PYREXIA [None]
  - WEIGHT DECREASED [None]
  - ARTHRALGIA [None]
  - VOMITING [None]
  - BLOOD CALCIUM DECREASED [None]
  - OEDEMA PERIPHERAL [None]
  - PAIN IN EXTREMITY [None]
  - GINGIVAL PAIN [None]
  - PAIN [None]
  - MUSCULOSKELETAL PAIN [None]
  - LOCAL SWELLING [None]
